FAERS Safety Report 6209404-8 (Version None)
Quarter: 2009Q2

REPORT INFORMATION
  Report Type: 
  Country: None (occurrence: None)
  Receive Date: 20090529
  Receipt Date: 20090519
  Transmission Date: 20091009
  Serious: Yes (Hospitalization, Disabling)
  Sender: FDA-Public Use
  Company Number: US-MERCK-0902USA04514

PATIENT
  Age: 53 Year
  Sex: Female
  Weight: 97 kg

DRUGS (13)
  1. FOSAMAX [Suspect]
     Indication: OSTEOPOROSIS
     Route: 048
     Dates: start: 19980101, end: 20080101
  2. FOSAMAX [Suspect]
     Indication: OSTEOPENIA
     Route: 048
     Dates: start: 19980101, end: 20080101
  3. SYNTHROID [Concomitant]
     Indication: HYPOTHYROIDISM
     Route: 065
  4. CYTOMEL [Concomitant]
     Route: 065
  5. LIPITOR [Concomitant]
     Route: 065
  6. AMBIEN [Concomitant]
     Route: 065
  7. WELLBUTRIN [Concomitant]
     Route: 065
  8. ZOLOFT [Concomitant]
     Route: 065
  9. ZYPREXA [Concomitant]
     Route: 065
  10. REMERON [Concomitant]
     Route: 065
  11. KLONOPIN [Concomitant]
     Route: 065
  12. CALTRATE + D [Concomitant]
     Route: 065
  13. VIVELLE [Concomitant]
     Route: 065

REACTIONS (9)
  - ARTERIOSPASM CORONARY [None]
  - FALL [None]
  - FEMUR FRACTURE [None]
  - GLUCOSE TOLERANCE IMPAIRED [None]
  - HYPOPHOSPHATAEMIA [None]
  - LOW TURNOVER OSTEOPATHY [None]
  - OSTEOPOROSIS [None]
  - STRESS FRACTURE [None]
  - WEIGHT INCREASED [None]
